FAERS Safety Report 18629022 (Version 1)
Quarter: 2020Q4

REPORT INFORMATION
  Report Type: Spontaneous
  Country: US (occurrence: US)
  Receive Date: 20201217
  Receipt Date: 20201217
  Transmission Date: 20210114
  Serious: No
  Sender: FDA-Public Use
  Company Number: US-ESPERIONTHERAPEUTICS-2020USA00072

PATIENT
  Age: 8 Decade
  Sex: Female

DRUGS (1)
  1. NEXLETOL [Suspect]
     Active Substance: BEMPEDOIC ACID
     Indication: BLOOD CHOLESTEROL INCREASED
     Dosage: 180 MILLIGRAM, QD
     Route: 048
     Dates: start: 202009

REACTIONS (2)
  - Abdominal discomfort [Unknown]
  - Dermatitis [Unknown]

NARRATIVE: CASE EVENT DATE: 202009
